FAERS Safety Report 16966406 (Version 1)
Quarter: 2019Q4

REPORT INFORMATION
  Report Type: Spontaneous
  Country: CA (occurrence: CA)
  Receive Date: 20191028
  Receipt Date: 20191028
  Transmission Date: 20200122
  Serious: Yes (Life-Threatening)
  Sender: FDA-Public Use
  Company Number: CA-PFIZER INC-2019462113

PATIENT
  Age: 53 Year
  Sex: Female
  Weight: 58.96 kg

DRUGS (1)
  1. ALESSE 28 [Suspect]
     Active Substance: ETHINYL ESTRADIOL\LEVONORGESTREL
     Indication: MENORRHAGIA
     Dosage: UNK, 1X/DAY
     Route: 048

REACTIONS (7)
  - Panic attack [Recovered/Resolved]
  - Muscle spasms [Recovered/Resolved]
  - Anxiety [Recovered/Resolved]
  - Heart injury [Recovered/Resolved]
  - Blood cholesterol normal [Recovered/Resolved]
  - Blood pressure normal [Recovered/Resolved]
  - Myocardial infarction [Recovered/Resolved]
